FAERS Safety Report 9639362 (Version 2)
Quarter: 2014Q2

REPORT INFORMATION
  Report Type: Spontaneous
  Country: CA (occurrence: CA)
  Receive Date: 20131022
  Receipt Date: 20140519
  Transmission Date: 20141212
  Serious: Yes (Other)
  Sender: FDA-Public Use
  Company Number: CA-009507513-1310CAN010063

PATIENT
  Age: 66 Year
  Sex: Male

DRUGS (10)
  1. RIBAVIRIN [Suspect]
     Indication: CHRONIC HEPATITIS C
     Dosage: 1600 MG PER DAY
     Route: 048
     Dates: start: 20121205
  2. RIBAVIRIN [Suspect]
     Dosage: 1200MG PERD DAY
     Route: 048
     Dates: end: 20130913
  3. VICTRELIS [Suspect]
     Indication: CHRONIC HEPATITIS C
     Dosage: 800 MG, THREE TIMES A DAY
     Route: 048
     Dates: start: 20130102
  4. PEGASYS [Suspect]
     Indication: CHRONIC HEPATITIS C
     Dosage: 180 MICROGRAM PER WEEK (0.5 ML PRE-FILLED SYRINGE)
     Route: 058
     Dates: start: 20121215, end: 20130913
  5. RAMIPRIL [Concomitant]
     Dosage: UNK, QD
     Route: 048
  6. METOPROLOL TARTRATE [Concomitant]
     Dosage: UNK, BID
     Route: 048
  7. WARFARIN SODIUM [Concomitant]
     Dosage: UNK
     Route: 065
  8. SYMBICORT [Concomitant]
     Indication: ASTHMA
     Dosage: 2 PUFFS (2 IN 1D)
     Route: 065
  9. VENTOLIN (ALBUTEROL SULFATE) [Concomitant]
     Route: 065
  10. SPIRIVA [Concomitant]
     Indication: ASTHMA
     Dosage: 1 PUFF 1 DAYS
     Route: 065

REACTIONS (2)
  - Haemoglobin decreased [Unknown]
  - Platelet count decreased [Unknown]
